FAERS Safety Report 17020485 (Version 2)
Quarter: 2020Q1

REPORT INFORMATION
  Report Type: Spontaneous
  Country: CZ (occurrence: CZ)
  Receive Date: 20191112
  Receipt Date: 20200116
  Transmission Date: 20200409
  Serious: Yes (Other)
  Sender: FDA-Public Use
  Company Number: NVSC2019CZ031535

PATIENT
  Sex: Male

DRUGS (14)
  1. RITUXIMAB. [Suspect]
     Active Substance: RITUXIMAB
     Dosage: UNK CYCLIC (8 CYCLES)
     Route: 065
     Dates: start: 201110, end: 201209
  2. RITUXIMAB. [Suspect]
     Active Substance: RITUXIMAB
     Dosage: UNK UNK, CYCLIC (6 CYCLES)
     Route: 065
     Dates: start: 201508, end: 201601
  3. NADROPARIN [Concomitant]
     Active Substance: NADROPARIN
     Indication: THROMBOSIS PROPHYLAXIS
     Dosage: UNK
     Route: 065
  4. BENDAMUSTINE HYDROCHLORIDE. [Suspect]
     Active Substance: BENDAMUSTINE HYDROCHLORIDE
     Indication: MANTLE CELL LYMPHOMA
     Dosage: SECOND LINE
     Route: 065
     Dates: start: 201508, end: 201601
  5. DOXORUBICIN [Suspect]
     Active Substance: DOXORUBICIN
     Indication: MANTLE CELL LYMPHOMA
     Dosage: UNK UNK, CYCLIC(8 CYCLES)
     Route: 065
     Dates: start: 201006
  6. RITUXIMAB. [Suspect]
     Active Substance: RITUXIMAB
     Indication: MANTLE CELL LYMPHOMA STAGE IV
     Dosage: UNK, CYCLIC (8 CYCLES)
     Route: 065
     Dates: start: 201006
  7. APIXABAN [Concomitant]
     Active Substance: APIXABAN
     Indication: THROMBOSIS PROPHYLAXIS
     Dosage: UNK
     Route: 065
  8. VINCRISTINE [Suspect]
     Active Substance: VINCRISTINE
     Indication: MANTLE CELL LYMPHOMA
     Dosage: UNK, CYCLIC (8 CYCLES)
     Route: 065
     Dates: start: 201006
  9. VALACICLOVIR [Concomitant]
     Active Substance: VALACYCLOVIR HYDROCHLORIDE
     Indication: PRODUCT USED FOR UNKNOWN INDICATION
     Dosage: UNK
     Route: 065
  10. IBRUTINIB [Concomitant]
     Active Substance: IBRUTINIB
     Indication: PRODUCT USED FOR UNKNOWN INDICATION
     Dosage: UNK
     Route: 065
     Dates: start: 201703
  11. METHOTREXATE. [Suspect]
     Active Substance: METHOTREXATE
     Indication: MANTLE CELL LYMPHOMA
     Dosage: UNK
     Route: 037
     Dates: start: 201006
  12. SULFAMETHOXAZOLE AND TRIMETHOPRIM [Concomitant]
     Active Substance: SULFAMETHOXAZOLE\TRIMETHOPRIM
     Indication: PRODUCT USED FOR UNKNOWN INDICATION
     Dosage: UNK
     Route: 065
  13. CYCLOPHOSPHAMIDE. [Suspect]
     Active Substance: CYCLOPHOSPHAMIDE
     Indication: MANTLE CELL LYMPHOMA
     Dosage: UNK, CYCLIC (8 CYCLES)
     Route: 065
     Dates: start: 201006
  14. PREDNISONE. [Suspect]
     Active Substance: PREDNISONE
     Indication: MANTLE CELL LYMPHOMA
     Dosage: UNK, CYCLIC (8 CYCLES)
     Route: 065
     Dates: start: 201006

REACTIONS (7)
  - Pleurisy [Unknown]
  - Renal cancer [Unknown]
  - Ileus [Unknown]
  - Respiratory tract infection [Unknown]
  - Cholelithiasis [Unknown]
  - Pneumonia [Unknown]
  - Bronchitis [Unknown]

NARRATIVE: CASE EVENT DATE: 201101
